FAERS Safety Report 9486077 (Version 2)
Quarter: 2013Q3

REPORT INFORMATION
  Report Type: Spontaneous
  Country: ES (occurrence: ES)
  Receive Date: 20130829
  Receipt Date: 20130903
  Transmission Date: 20140515
  Serious: Yes (Other)
  Sender: FDA-Public Use
  Company Number: ES-JNJFOC-20130811804

PATIENT
  Sex: 0

DRUGS (6)
  1. INFLIXIMAB [Suspect]
     Indication: INFLAMMATION
     Route: 042
  2. GOLIMUMAB [Suspect]
     Indication: INFLAMMATION
     Route: 058
  3. ADALIMUMAB [Suspect]
     Indication: INFLAMMATION
     Route: 065
  4. RITUXIMAB [Suspect]
     Indication: INFLAMMATION
     Route: 065
  5. ABATACEPT [Suspect]
     Indication: INFLAMMATION
     Route: 065
  6. ETANERCEPT [Suspect]
     Indication: INFLAMMATION
     Route: 065

REACTIONS (4)
  - Listeriosis [Unknown]
  - Meningitis listeria [Unknown]
  - Listeria encephalitis [Unknown]
  - Listeria sepsis [Unknown]
